FAERS Safety Report 13231234 (Version 4)
Quarter: 2017Q2

REPORT INFORMATION
  Report Type: Spontaneous
  Country: CH (occurrence: CH)
  Receive Date: 20170214
  Receipt Date: 20170501
  Transmission Date: 20170830
  Serious: Yes (Other)
  Sender: FDA-Public Use
  Company Number: CH-ASTELLAS-2017US002696

PATIENT
  Age: 71 Year
  Sex: Male

DRUGS (9)
  1. BETMIGA [Suspect]
     Active Substance: MIRABEGRON
     Indication: PRODUCT USED FOR UNKNOWN INDICATION
     Route: 065
     Dates: start: 20161215, end: 20170110
  2. CRESTOR [Concomitant]
     Active Substance: ROSUVASTATIN CALCIUM
     Indication: BLOOD CHOLESTEROL
     Dosage: 20, UNKNOWN FREQ.
     Route: 065
  3. EXFORGE [Concomitant]
     Active Substance: AMLODIPINE BESYLATE\VALSARTAN
     Indication: HYPERTENSION
     Dosage: 5/80, UNKNOWN FREQ.
     Route: 065
  4. DUPHALAC [Concomitant]
     Active Substance: LACTULOSE
     Indication: DYSCHEZIA
     Dosage: UNK UNK, UNKNOWN FREQ.
     Route: 065
  5. MOVICOL [Concomitant]
     Active Substance: POLYETHYLENE GLYCOL 3350\POTASSIUM CHLORIDE\SODIUM BICARBONATE\SODIUM CHLORIDE
     Indication: DYSCHEZIA
     Dosage: UNK, UNKNOWN FREQ.
     Route: 065
  6. CIPROFLOXACIN-MEPHA [Concomitant]
     Indication: PRODUCT USED FOR UNKNOWN INDICATION
     Dosage: UNK, UNKNOWN FREQ.
     Route: 065
     Dates: start: 20161215, end: 20161220
  7. BETMIGA [Suspect]
     Active Substance: MIRABEGRON
     Indication: PRODUCT USED FOR UNKNOWN INDICATION
     Dosage: UNK, UNKNOWN FREQ.
     Route: 065
  8. ASPIRIN CARDIO [Concomitant]
     Active Substance: ASPIRIN
     Indication: THROMBOSIS
     Dosage: 100, UNKNOWN FREQ.
     Route: 065
  9. METO ZEROK [Concomitant]
     Active Substance: METOPROLOL SUCCINATE
     Indication: PRODUCT USED FOR UNKNOWN INDICATION
     Dosage: 100, UNKNOWN FREQ.
     Route: 065

REACTIONS (18)
  - Urinary tract obstruction [Unknown]
  - Pain [Unknown]
  - Dysuria [Recovered/Resolved]
  - Urinary tract infection [Recovered/Resolved]
  - Abdominal pain [Recovered/Resolved]
  - Drug dispensing error [Unknown]
  - Abdominal discomfort [Recovered/Resolved]
  - Insomnia [Recovering/Resolving]
  - Haemorrhage [Recovered/Resolved]
  - Perineal pain [Recovered/Resolved]
  - Urethral pain [Recovered/Resolved]
  - Dysuria [Recovering/Resolving]
  - Diarrhoea [Unknown]
  - Urethral obstruction [Recovered/Resolved]
  - Blood urine present [Recovering/Resolving]
  - Pain in extremity [Unknown]
  - Urinary retention [Unknown]
  - Fatigue [Recovering/Resolving]

NARRATIVE: CASE EVENT DATE: 20161220
